FAERS Safety Report 11662122 (Version 3)
Quarter: 2017Q3

REPORT INFORMATION
  Report Type: Spontaneous
  Country: JP (occurrence: JP)
  Receive Date: 20151026
  Receipt Date: 20170714
  Transmission Date: 20171127
  Serious: Yes (Disabling, Other)
  Sender: FDA-Public Use
  Company Number: JP-GILEAD-2015-0178797

PATIENT
  Age: 67 Year
  Sex: Male

DRUGS (2)
  1. HEPSERA [Suspect]
     Active Substance: ADEFOVIR DIPIVOXIL
     Indication: HEPATITIS B
     Dosage: 10 MG, 1D
     Route: 048
     Dates: start: 201209, end: 20150512
  2. TENOFOVIR DISOPROXIL FUMARATE. [Suspect]
     Active Substance: TENOFOVIR DISOPROXIL FUMARATE
     Indication: PRODUCT USED FOR UNKNOWN INDICATION
     Dosage: 300 MG, QOD
     Route: 065
     Dates: start: 20150512

REACTIONS (13)
  - Fanconi syndrome acquired [Unknown]
  - Rib fracture [Recovered/Resolved]
  - Spinal fracture [Recovered/Resolved]
  - Hypophosphataemic rickets [Unknown]
  - Osteomalacia [Unknown]
  - Arthralgia [Recovered/Resolved]
  - Arthralgia [Recovered/Resolved]
  - Arthralgia [Recovered/Resolved]
  - Blood alkaline phosphatase increased [Recovered/Resolved]
  - Abdominal pain upper [Recovered/Resolved]
  - Osteoarthritis [Unknown]
  - Pain [Recovered/Resolved]
  - Beta 2 microglobulin urine increased [Recovered/Resolved]

NARRATIVE: CASE EVENT DATE: 201303
